FAERS Safety Report 24134775 (Version 1)
Quarter: 2024Q3

REPORT INFORMATION
  Report Type: Report from Study
  Country: US (occurrence: US)
  Receive Date: 20240725
  Receipt Date: 20240725
  Transmission Date: 20241017
  Serious: No
  Sender: ACADIA PHARMACEUTICALS
  Company Number: US-ACADIA PHARMACEUTICALS INC.-ACA-2024-PIM-003116

PATIENT
  Sex: Male

DRUGS (16)
  1. NUPLAZID [Suspect]
     Active Substance: PIMAVANSERIN TARTRATE
     Indication: Parkinson^s disease
     Dosage: 34 MILLIGRAM, QD
     Route: 048
     Dates: start: 201802
  2. GABAPENTIN [Concomitant]
     Active Substance: GABAPENTIN
  3. XANAX [Concomitant]
     Active Substance: ALPRAZOLAM
  4. RASAGILINE MESYLATE [Concomitant]
     Active Substance: RASAGILINE MESYLATE
  5. FINASTERIDE [Concomitant]
     Active Substance: FINASTERIDE
  6. CARBIDOPA LEVODOPA [Concomitant]
     Active Substance: CARBIDOPA\LEVODOPA
  7. FAMOTIDINE [Concomitant]
     Active Substance: FAMOTIDINE
  8. SEROQUEL [Concomitant]
     Active Substance: QUETIAPINE FUMARATE
  9. LEXAPRO [Concomitant]
     Active Substance: ESCITALOPRAM OXALATE
  10. PANTOPRAZOLE SODIUM [Concomitant]
     Active Substance: PANTOPRAZOLE SODIUM
  11. ASPIRIN [Concomitant]
     Active Substance: ASPIRIN
  12. MELATONIN [Concomitant]
     Active Substance: MELATONIN
  13. KETOROLAC TROMETHAMINE [Concomitant]
     Active Substance: KETOROLAC TROMETHAMINE
  14. ARICEPT [Concomitant]
     Active Substance: DONEPEZIL HYDROCHLORIDE
  15. DORZOLAMIDE [Concomitant]
     Active Substance: DORZOLAMIDE
  16. ZETIA [Concomitant]
     Active Substance: EZETIMIBE

REACTIONS (1)
  - Illness [Unknown]
